FAERS Safety Report 5680485-3 (Version None)
Quarter: 2008Q1

REPORT INFORMATION
  Report Type: 
  Country: None (occurrence: None)
  Receive Date: 20080326
  Receipt Date: 20080318
  Transmission Date: 20080703
  Serious: Yes (Other)
  Sender: FDA-Public Use
  Company Number: US-ALLERGAN-0803286US

PATIENT
  Sex: Male

DRUGS (2)
  1. BOTOX [Suspect]
     Indication: SPASMODIC DYSPHONIA
     Dosage: UNK, SINGLE
     Dates: start: 20080101, end: 20080101
  2. ADDERALL 10 [Concomitant]
     Dosage: UNK, PRN

REACTIONS (2)
  - ASTHENIA [None]
  - TREMOR [None]
